FAERS Safety Report 6154872-3 (Version None)
Quarter: 2009Q2

REPORT INFORMATION
  Report Type: 
  Country: None (occurrence: None)
  Receive Date: 20090414
  Receipt Date: 20090402
  Transmission Date: 20091009
  Serious: Yes (Disabling, Other)
  Sender: FDA-Public Use
  Company Number: CA-PFIZER INC-2007108077

PATIENT

DRUGS (3)
  1. CHAMPIX [Suspect]
     Indication: SMOKING CESSATION THERAPY
     Dosage: 0.5 MG, 1X/DAY
     Route: 048
     Dates: start: 20071208, end: 20071208
  2. ACETAMINOPHEN AND OXYCODONE HCL [Suspect]
     Indication: HERNIA PAIN
     Route: 048
     Dates: start: 20071209
  3. ATIVAN [Concomitant]
     Dosage: HS PRN
     Dates: start: 20040101

REACTIONS (5)
  - ANXIETY [None]
  - DEPRESSED LEVEL OF CONSCIOUSNESS [None]
  - DIZZINESS [None]
  - MANIA [None]
  - PANIC ATTACK [None]
